FAERS Safety Report 7323984-0 (Version None)
Quarter: 2011Q1

REPORT INFORMATION
  Report Type: 
  Country: None (occurrence: None)
  Receive Date: 20110301
  Receipt Date: 20110222
  Transmission Date: 20110831
  Serious: Yes (Hospitalization)
  Sender: FDA-Public Use
  Company Number: DE-BRISTOL-MYERS SQUIBB COMPANY-15297997

PATIENT
  Age: 59 Year
  Sex: Male
  Weight: 111 kg

DRUGS (13)
  1. METFORMIN HCL [Suspect]
     Indication: DIABETES MELLITUS
     Dosage: 1 DF: 2*1 DAY ABOUT 2007.APROX 3 YEARS
     Route: 048
     Dates: start: 20070101
  2. SPIRONOLACTONE [Concomitant]
     Dosage: 1 DF = 100 UNIT NOT MENTIONED
  3. SIMVASTATIN [Suspect]
     Dosage: APROX 2 YEARS ABOUT 2008
     Route: 048
     Dates: start: 20080101
  4. JANUMET [Concomitant]
     Dosage: 1 DF = 50/850 MG
  5. AMLODIPINE [Suspect]
     Dosage: 1/2 PER DAY
  6. AVANDAMET [Concomitant]
     Dosage: 1 DF= 4 MG/1
  7. DOCITON [Concomitant]
     Dosage: 1 DF = 40 UNIT NOT MENTIONED,.5 UNIT NOT MENTIONED TAKEN 3 TIMES PER DAY
  8. ONGLYZA [Suspect]
     Indication: DIABETES MELLITUS
     Dosage: 1 DF: 1*1DAY
     Route: 048
     Dates: start: 20100726
  9. FUROSEMIDE [Concomitant]
  10. ATENOLOL [Suspect]
  11. GODAMED [Suspect]
     Dosage: 1 DF = 100 UNIT NOT MENTIONED
  12. TORSEMIDE [Suspect]
     Dosage: 1/2 PER DAY
  13. ENAHEXAL [Suspect]

REACTIONS (6)
  - LEUKOCYTOSIS [None]
  - BLOOD BILIRUBIN INCREASED [None]
  - ASCITES [None]
  - BLOOD ALBUMIN DECREASED [None]
  - GAMMA-GLUTAMYLTRANSFERASE INCREASED [None]
  - TRANSAMINASES INCREASED [None]
